FAERS Safety Report 15326803 (Version 1)
Quarter: 2018Q3

REPORT INFORMATION
  Report Type: Spontaneous
  Country: US (occurrence: US)
  Receive Date: 20180828
  Receipt Date: 20180828
  Transmission Date: 20181010
  Serious: Yes (Hospitalization, Other)
  Sender: FDA-Public Use
  Company Number: US-GLAXOSMITHKLINE-US2018152710

PATIENT
  Age: 42 Year
  Sex: Female

DRUGS (2)
  1. BACTROBAN [Suspect]
     Active Substance: MUPIROCIN\MUPIROCIN CALCIUM
     Indication: STAPHYLOCOCCAL INFECTION
     Dosage: UNK UNK, PRN
     Dates: start: 2013
  2. MUPIROCIN. [Suspect]
     Active Substance: MUPIROCIN
     Indication: STAPHYLOCOCCAL INFECTION
     Dosage: UNK UNK, PRN
     Dates: start: 2013

REACTIONS (10)
  - Gait disturbance [Unknown]
  - Scar [Unknown]
  - Pain [Unknown]
  - Kidney infection [Unknown]
  - Incorrect route of drug administration [Unknown]
  - Product use issue [Unknown]
  - Off label use [Unknown]
  - Application site burn [Recovering/Resolving]
  - Rash [Unknown]
  - Adverse drug reaction [Unknown]

NARRATIVE: CASE EVENT DATE: 201801
